FAERS Safety Report 9206819 (Version 1)
Quarter: 2013Q2

REPORT INFORMATION
  Report Type: Report from Study
  Country: US (occurrence: US)
  Receive Date: 20130403
  Receipt Date: 20130403
  Transmission Date: 20140414
  Serious: No
  Sender: FDA-Public Use
  Company Number: US-VERTEX PHARMACEUTICALS INC.-2013-004362

PATIENT
  Age: 51 Year
  Sex: Male
  Weight: 75 kg

DRUGS (6)
  1. VX-950 (TELAPREVIR) [Suspect]
     Indication: HEPATITIS C
     Dosage: 750 MG, TID
     Route: 048
  2. PEGASYS [Suspect]
     Indication: HEPATITIS C
  3. RIBAVIRIN [Suspect]
     Indication: HEPATITIS C
     Dosage: 200 MG, UNK
  4. CLONAZEPAM [Concomitant]
     Dosage: 0.5 MG, UNK
  5. PROMETHAZINE [Concomitant]
     Dosage: 25 MG, UNK
  6. SUBOXONE [Concomitant]
     Dosage: 4-1 MG

REACTIONS (2)
  - Headache [Recovered/Resolved]
  - Alopecia [Unknown]
